FAERS Safety Report 11526117 (Version 1)
Quarter: 2015Q3

REPORT INFORMATION
  Report Type: Spontaneous
  Country: CN (occurrence: CN)
  Receive Date: 20150918
  Receipt Date: 20150918
  Transmission Date: 20151125
  Serious: Yes (Other)
  Sender: FDA-Public Use
  Company Number: PHHY2015CN111765

PATIENT
  Age: 75 Year
  Sex: Female

DRUGS (1)
  1. CLOBETASOL [Suspect]
     Active Substance: CLOBETASOL
     Indication: PEMPHIGOID
     Dosage: 20 MG, BID
     Route: 061

REACTIONS (3)
  - Pemphigoid [Recovered/Resolved]
  - Condition aggravated [Recovered/Resolved]
  - Tinea infection [Recovered/Resolved]
